FAERS Safety Report 22329681 (Version 1)
Quarter: 2023Q2

REPORT INFORMATION
  Report Type: Other
  Country: US (occurrence: None)
  Receive Date: 20230517
  Receipt Date: 20230517
  Transmission Date: 20230722
  Serious: No
  Sender: FDA-Public Use
  Company Number: US-ROCHE-3261997

PATIENT
  Age: 55 Year
  Sex: Female

DRUGS (10)
  1. TOCILIZUMAB [Suspect]
     Active Substance: TOCILIZUMAB
     Indication: COVID-19
     Dosage: ONE DOSE
     Route: 065
  2. DEXAMETHASONE [Concomitant]
     Active Substance: DEXAMETHASONE
     Route: 065
  3. PHENYTOIN [Concomitant]
     Active Substance: PHENYTOIN
     Dosage: ONCE ON DAY 3
     Route: 042
  4. PHENYTOIN [Concomitant]
     Active Substance: PHENYTOIN
     Dosage: EVERY 8 H FOR THREE DOSES
     Route: 042
  5. TACROLIMUS [Concomitant]
     Active Substance: TACROLIMUS
     Dosage: 1 MG EVERY MORNING AND 2 MG EVERY NIGHT - PRIOR TO HOSPITALIZATION
     Route: 065
  6. TACROLIMUS [Concomitant]
     Active Substance: TACROLIMUS
     Dosage: TWICE DAILY ON DAY 7
     Route: 065
  7. TACROLIMUS [Concomitant]
     Active Substance: TACROLIMUS
     Dosage: TWICE DAILY ON DAY 8
     Route: 065
  8. MYCOPHENOLIC ACID [Concomitant]
     Active Substance: MYCOPHENOLIC ACID
  9. PREDNISONE [Concomitant]
     Active Substance: PREDNISONE
  10. PAXLOVID [Concomitant]
     Active Substance: NIRMATRELVIR\RITONAVIR
     Indication: COVID-19

REACTIONS (2)
  - Off label use [Unknown]
  - No adverse event [Unknown]
